FAERS Safety Report 7210146-0 (Version None)
Quarter: 2011Q1

REPORT INFORMATION
  Report Type: 
  Country: None (occurrence: None)
  Receive Date: 20110105
  Receipt Date: 20101227
  Transmission Date: 20110831
  Serious: No
  Sender: FDA-Public Use
  Company Number: US-ELI_LILLY_AND_COMPANY-US201010004310

PATIENT
  Age: 66 Year
  Sex: Female
  Weight: 51.247 kg

DRUGS (10)
  1. CALCIUM CARBONATE [Concomitant]
     Dosage: 600 MG, UNK
  2. MICOCILEN [Concomitant]
     Dosage: 80 MG, UNK
  3. VIT B12 [Concomitant]
  4. VIT C [Concomitant]
  5. FORTEO [Suspect]
     Indication: OSTEOPOROSIS
     Dosage: 20 UG, DAILY (1/D)
     Route: 058
     Dates: start: 20091201, end: 20101012
  6. FELODIPINE [Concomitant]
  7. VIT B COMPLEX [Concomitant]
  8. BISPHOSPHONATES [Concomitant]
  9. VIT E                              /00110501/ [Concomitant]
  10. ASPIRIN [Concomitant]

REACTIONS (1)
  - HYPERCALCAEMIA [None]
